FAERS Safety Report 8943069 (Version 1)
Quarter: 2012Q4

REPORT INFORMATION
  Report Type: 
  Country: GB (occurrence: GB)
  Receive Date: 20121204
  Receipt Date: 20121204
  Transmission Date: 20130627
  Serious: Yes (Other)
  Sender: FDA-Public Use
  Company Number: GB-MERCK-1211GBR012681

PATIENT

DRUGS (1)
  1. SIMVASTATIN [Suspect]

REACTIONS (1)
  - Tubulointerstitial nephritis [Unknown]
